FAERS Safety Report 8503000-5 (Version None)
Quarter: 2012Q3

REPORT INFORMATION
  Report Type: 
  Country: None (occurrence: None)
  Receive Date: 20120711
  Receipt Date: 20120703
  Transmission Date: 20120928
  Serious: Yes (Other)
  Sender: FDA-Public Use
  Company Number: PHHY2012DE057708

PATIENT
  Sex: Male

DRUGS (1)
  1. TASIGNA [Suspect]
     Indication: CHRONIC MYELOID LEUKAEMIA
     Dates: start: 20120101

REACTIONS (3)
  - CHRONIC LYMPHOCYTIC LEUKAEMIA [None]
  - NEOPLASM MALIGNANT [None]
  - LYMPHOCYTOSIS [None]
